FAERS Safety Report 10240960 (Version 4)
Quarter: 2014Q3

REPORT INFORMATION
  Report Type: Spontaneous
  Country: DE (occurrence: DE)
  Receive Date: 20140617
  Receipt Date: 20140806
  Transmission Date: 20150326
  Serious: Yes (Hospitalization, Other)
  Sender: FDA-Public Use
  Company Number: DE-BEH-2014043083

PATIENT
  Age: 75 Year
  Sex: Male
  Weight: 80 kg

DRUGS (10)
  1. SORTIS 20 MG [Concomitant]
  2. OCTAGAM IMMUNE GLOBULIN (HUMAN) [Suspect]
     Active Substance: HUMAN IMMUNOGLOBULIN G
     Indication: IMMUNOGLOBULIN THERAPY
     Dosage: 5 SEPARATE DOSES
     Route: 042
     Dates: start: 20140528
  3. METOPROLOL [Concomitant]
     Active Substance: METOPROLOL
  4. LYRICA 150 MG [Concomitant]
  5. BELOC ZOK MITE [Concomitant]
     Active Substance: METOPROLOL SUCCINATE
  6. ALL OTHER THERAPEUTIC PRODUCTS [Concomitant]
     Active Substance: UNSPECIFIED INGREDIENT
  7. TAMSULOSIN 0.4 MG [Concomitant]
     Active Substance: TAMSULOSIN
  8. PRIVIGEN [Suspect]
     Active Substance: HUMAN IMMUNOGLOBULIN G
     Indication: AUTOIMMUNE DISORDER
     Dosage: 2 G/KG BODY WEIGHT; 20 SEPARATE DOSES
     Route: 042
     Dates: start: 20140528, end: 20140601
  9. PRIVIGEN [Suspect]
     Active Substance: HUMAN IMMUNOGLOBULIN G
     Indication: NEURITIS
     Dosage: 2 G/KG BODY WEIGHT; 45 SEPARATE DOSES
     Route: 042
     Dates: start: 20140528, end: 20140601
  10. ASS 100 [Concomitant]
     Active Substance: ASPIRIN

REACTIONS (13)
  - Yellow skin [Recovered/Resolved]
  - Headache [Unknown]
  - Haemolytic anaemia [Recovered/Resolved]
  - Chromaturia [Recovered/Resolved]
  - Abdominal pain upper [Recovered/Resolved]
  - Angina pectoris [Unknown]
  - Renal failure acute [Recovered/Resolved]
  - Ocular icterus [Recovered/Resolved]
  - Malaise [Unknown]
  - Blood lactate dehydrogenase increased [Recovered/Resolved]
  - Jaundice [Recovered/Resolved]
  - Blood creatinine increased [Recovered/Resolved]
  - Haemoglobin decreased [Recovered/Resolved]

NARRATIVE: CASE EVENT DATE: 20140530
